FAERS Safety Report 6413954-9 (Version None)
Quarter: 2009Q4

REPORT INFORMATION
  Report Type: 
  Country: None (occurrence: None)
  Receive Date: 20091022
  Receipt Date: 20091022
  Transmission Date: 20100525
  Serious: Yes (Disabling)
  Sender: FDA-Public Use
  Company Number: None

PATIENT
  Age: 46 Year
  Sex: Female
  Weight: 65.7716 kg

DRUGS (1)
  1. ENBREL [Suspect]
     Indication: RHEUMATOID ARTHRITIS
     Dosage: 1 ML Q3WKS SQ 6-7 YEAR DURATION. DCD 9/09
     Route: 058
     Dates: start: 20090901

REACTIONS (1)
  - GLOMERULONEPHRITIS [None]
